FAERS Safety Report 5872175-9 (Version None)
Quarter: 2008Q3

REPORT INFORMATION
  Report Type: 
  Country: None (occurrence: None)
  Receive Date: 20080905
  Receipt Date: 20080828
  Transmission Date: 20090109
  Serious: Yes (Hospitalization)
  Sender: FDA-Public Use
  Company Number: FR-ABBOTT-08P-056-0473924-00

PATIENT
  Sex: Male

DRUGS (6)
  1. NORVIR [Suspect]
     Indication: HIV INFECTION
     Route: 048
  2. LAMIVUDINE [Suspect]
     Indication: HIV INFECTION
     Route: 048
  3. DARUNAVIR [Suspect]
     Indication: HIV INFECTION
     Route: 048
  4. ETRAVIRINE [Suspect]
     Indication: HIV INFECTION
     Route: 048
  5. DIDANOSINE [Suspect]
     Indication: HIV INFECTION
     Route: 048
  6. RALTEGRAVIR POTASSIQUE [Suspect]
     Indication: HIV INFECTION
     Route: 048

REACTIONS (2)
  - MYOCARDIAL INFARCTION [None]
  - VENTRICULAR TACHYCARDIA [None]
